FAERS Safety Report 8785115 (Version 1)
Quarter: 2012Q4

REPORT INFORMATION
  Report Type: Spontaneous
  Country: US (occurrence: None)
  Receive Date: 20120831
  Receipt Date: 20120831
  Transmission Date: 20130627
  Serious: Yes (Hospitalization)
  Sender: FDA-Public Use
  Company Number: AUR-APL-2012-03673

PATIENT
  Age: 56 Year
  Sex: Female

DRUGS (8)
  1. TOPIRAMATE [Suspect]
     Indication: MIGRAINE HEADACHE
     Dosage: (25 MG, 1 D)
  2. TOPIRAMATE [Suspect]
     Indication: MIGRAINE HEADACHE
     Dosage: (50 MG, 1 D)
  3. VENLAFAXINE [Concomitant]
  4. ATORVASTATIN (ATORVASTATIN) [Concomitant]
  5. BUSPIRONE [Concomitant]
  6. MAXZIDE [Concomitant]
  7. ESTRADIOL [Concomitant]
  8. PROGESTERONE [Concomitant]

REACTIONS (4)
  - Angle closure glaucoma [None]
  - Migraine [None]
  - Blood pressure increased [None]
  - Heart rate increased [None]
